FAERS Safety Report 8773175 (Version 1)
Quarter: 2012Q4

REPORT INFORMATION
  Report Type: 
  Country: US (occurrence: US)
  Receive Date: 20120907
  Receipt Date: 20120907
  Transmission Date: 20130627
  Serious: Yes (Other)
  Sender: FDA-Public Use
  Company Number: CHPA2012US018998

PATIENT
  Age: 64 Year
  Sex: Female

DRUGS (5)
  1. SLOW FE BROWN [Suspect]
     Indication: MINERAL SUPPLEMENTATION
     Dosage: 1 DF, QD
     Route: 048
  2. SIMBICORT TURBUHALER [Concomitant]
     Indication: ASTHMA
     Dosage: UNK, UNK
  3. SINGULAIR [Concomitant]
     Indication: ASTHMA
     Dosage: UNK, UNK
  4. VERAMYST [Concomitant]
     Indication: ASTHMA
     Dosage: UNK, UNK
  5. DRUG THERAPY NOS [Concomitant]
     Indication: ASTHMA
     Dosage: UNK, UNK

REACTIONS (2)
  - Blood cholesterol increased [Not Recovered/Not Resolved]
  - Fatigue [Not Recovered/Not Resolved]
